FAERS Safety Report 7480730-8 (Version None)
Quarter: 2011Q2

REPORT INFORMATION
  Report Type: 
  Country: None (occurrence: None)
  Receive Date: 20110516
  Receipt Date: 20110502
  Transmission Date: 20111010
  Serious: Yes (Hospitalization, Other)
  Sender: FDA-Public Use
  Company Number: US-BAYER-2010-002082

PATIENT
  Age: 34 Year
  Sex: Female
  Weight: 90.249 kg

DRUGS (1)
  1. YAZ [Suspect]
     Indication: PRODUCT USED FOR UNKNOWN INDICATION
     Dosage: UNK
     Dates: start: 20080701, end: 20081001

REACTIONS (3)
  - PANCREATITIS [None]
  - HEPATIC VEIN THROMBOSIS [None]
  - PAIN [None]
